FAERS Safety Report 9942877 (Version 1)
Quarter: 2014Q1

REPORT INFORMATION
  Report Type: Report from Study
  Country: US (occurrence: US)
  Receive Date: 20140303
  Receipt Date: 20140303
  Transmission Date: 20141002
  Serious: Yes (Hospitalization)
  Sender: FDA-Public Use
  Company Number: US-ABBVIE-13P-163-1046182-00

PATIENT
  Sex: Female
  Weight: 79.45 kg

DRUGS (6)
  1. HUMIRA PEN [Suspect]
     Indication: CROHN^S DISEASE
     Dates: start: 2011
  2. WELLBUTRIN [Concomitant]
     Indication: DEPRESSION
  3. WELLBUTRIN [Concomitant]
     Indication: ANXIETY
  4. KLONOPIN [Concomitant]
     Indication: INSOMNIA
  5. CYMBALTA [Concomitant]
     Indication: DEPRESSION
  6. CYMBALTA [Concomitant]
     Indication: ANXIETY

REACTIONS (1)
  - Crohn^s disease [Recovered/Resolved]
